FAERS Safety Report 26170515 (Version 1)
Quarter: 2025Q4

REPORT INFORMATION
  Report Type: Spontaneous
  Country: US (occurrence: US)
  Receive Date: 20251217
  Receipt Date: 20251217
  Transmission Date: 20260118
  Serious: No
  Sender: ALVOGEN
  Company Number: US-ALVOGEN-2025096472

PATIENT
  Age: 56 Year
  Sex: Female

DRUGS (1)
  1. FENTANYL [Suspect]
     Active Substance: FENTANYL
     Indication: Pain
     Dosage: 75 MCG/HR?EXP DATE: UU-DEC-2026?PRODUCT RECEIVED DATE: 21-FEB-2025
     Route: 062
     Dates: start: 2025

REACTIONS (4)
  - Device physical property issue [Unknown]
  - Device malfunction [Unknown]
  - Device issue [Unknown]
  - Poor quality product administered [Unknown]

NARRATIVE: CASE EVENT DATE: 20250307
